FAERS Safety Report 16419886 (Version 1)
Quarter: 2019Q3

REPORT INFORMATION
  Report Type: Spontaneous
  Country: US (occurrence: US)
  Receive Date: 20190611
  Receipt Date: 20190611
  Transmission Date: 20191004
  Serious: Yes (Disabling)
  Sender: FDA-Public Use
  Company Number: None

PATIENT
  Age: 21 Year
  Sex: Male
  Weight: 104.33 kg

DRUGS (5)
  1. PARAGARD T 380A [Suspect]
     Active Substance: COPPER
  2. CYMBALTA [Concomitant]
     Active Substance: DULOXETINE HYDROCHLORIDE
  3. VYVANSE [Concomitant]
     Active Substance: LISDEXAMFETAMINE DIMESYLATE
  4. TULANA [Concomitant]
     Active Substance: NORETHINDRONE
  5. ATIVAN [Concomitant]
     Active Substance: LORAZEPAM

REACTIONS (5)
  - Complication of device insertion [None]
  - Pain [None]
  - Device dislocation [None]
  - Device defective [None]
  - Muscle spasms [None]

NARRATIVE: CASE EVENT DATE: 20190603
